FAERS Safety Report 24677020 (Version 1)
Quarter: 2024Q4

REPORT INFORMATION
  Report Type: Spontaneous
  Country: US (occurrence: US)
  Receive Date: 20241128
  Receipt Date: 20241128
  Transmission Date: 20250115
  Serious: Yes (Hospitalization)
  Sender: STRIDES
  Company Number: US-STRIDES ARCOLAB LIMITED-2024SP015520

PATIENT
  Age: 54 Year
  Sex: Female

DRUGS (6)
  1. OMEPRAZOLE [Interacting]
     Active Substance: OMEPRAZOLE
     Indication: Gastrooesophageal reflux disease
     Dosage: UNK
     Route: 065
  2. ATORVASTATIN [Interacting]
     Active Substance: ATORVASTATIN
     Indication: Hyperlipidaemia
     Dosage: UNK
     Route: 065
  3. ATORVASTATIN [Interacting]
     Active Substance: ATORVASTATIN
     Dosage: UNK (MINIMUM DOSAGE)
     Route: 065
  4. ANASTROZOLE [Interacting]
     Active Substance: ANASTROZOLE
     Indication: Breast cancer
     Dosage: UNK
     Route: 065
  5. CYCLOBENZAPRINE [Concomitant]
     Active Substance: CYCLOBENZAPRINE
     Indication: Fibromyalgia
     Dosage: UNK
     Route: 065
  6. PAROXETINE [Concomitant]
     Active Substance: PAROXETINE
     Indication: Depression
     Dosage: UNK
     Route: 065

REACTIONS (3)
  - Drug interaction [Recovered/Resolved]
  - Rhabdomyolysis [Recovered/Resolved]
  - Musculoskeletal toxicity [Recovered/Resolved]
